FAERS Safety Report 7050994-3 (Version None)
Quarter: 2010Q4

REPORT INFORMATION
  Report Type: 
  Country: None (occurrence: None)
  Receive Date: 20101018
  Receipt Date: 20101018
  Transmission Date: 20110411
  Serious: Yes (Hospitalization)
  Sender: FDA-Public Use
  Company Number: None

PATIENT
  Age: 5 Month
  Sex: Male
  Weight: 10.2 kg

DRUGS (3)
  1. GAMUNEX [Suspect]
     Indication: BLOOD IMMUNOGLOBULIN A
     Dosage: 5 GM IN 100 ML D5W ONCE IV DRIP
     Route: 041
     Dates: start: 20100915, end: 20100915
  2. GAMUNEX [Suspect]
     Indication: BLOOD IMMUNOGLOBULIN G
     Dosage: 5 GM IN 100 ML D5W ONCE IV DRIP
     Route: 041
     Dates: start: 20100915, end: 20100915
  3. GAMUNEX [Suspect]
     Indication: BLOOD IMMUNOGLOBULIN M
     Dosage: 5 GM IN 100 ML D5W ONCE IV DRIP
     Route: 041
     Dates: start: 20100915, end: 20100915

REACTIONS (7)
  - COUGH [None]
  - CRYING [None]
  - DYSPNOEA [None]
  - ERYTHEMA [None]
  - STRIDOR [None]
  - SWELLING [None]
  - VOMITING [None]
